FAERS Safety Report 8365398-0 (Version None)
Quarter: 2012Q2

REPORT INFORMATION
  Report Type: 
  Country: None (occurrence: None)
  Receive Date: 20120516
  Receipt Date: 20120510
  Transmission Date: 20120825
  Serious: Yes (Other)
  Sender: FDA-Public Use
  Company Number: CHPA2012US010185

PATIENT
  Age: 73 Year
  Sex: Female

DRUGS (7)
  1. PREVACID 24 HR [Suspect]
     Indication: GASTROOESOPHAGEAL REFLUX DISEASE
     Dosage: 30 MG, QD
     Route: 048
     Dates: start: 20120301
  2. VICODIN [Concomitant]
     Indication: FIBROMYALGIA
  3. POTASSIUM CHLORIDE [Concomitant]
     Route: 048
  4. NEURONTIN [Concomitant]
     Indication: FIBROMYALGIA
  5. LEXAPRO [Concomitant]
  6. PREVACID 24 HR [Suspect]
     Dosage: 15 MG, QD
     Route: 048
  7. CYCLOBENZAPRINE HCL [Concomitant]

REACTIONS (4)
  - OVERDOSE [None]
  - INCORRECT DRUG ADMINISTRATION DURATION [None]
  - CATARACT [None]
  - DRUG INEFFECTIVE FOR UNAPPROVED INDICATION [None]
